FAERS Safety Report 6255643-X (Version None)
Quarter: 2009Q3

REPORT INFORMATION
  Report Type: 
  Country: None (occurrence: None)
  Receive Date: 20090701
  Receipt Date: 20090622
  Transmission Date: 20100115
  Serious: Yes (Hospitalization, Disabling, Other)
  Sender: FDA-Public Use
  Company Number: 1000006980

PATIENT
  Age: 14 Year
  Sex: Female

DRUGS (3)
  1. LEXAPRO [Suspect]
     Dosage: 10 MG (10 MG, 1 IN 1 D), ORAL; 20 MG (20 MG, 1 IN 1 D), ORAL
     Route: 048
     Dates: start: 20070123, end: 20070123
  2. LEXAPRO [Suspect]
     Dosage: 10 MG (10 MG, 1 IN 1 D), ORAL; 20 MG (20 MG, 1 IN 1 D), ORAL
     Route: 048
     Dates: start: 20070102, end: 20070129
  3. LEXAPRO [Suspect]
     Dosage: 10 MG (10 MG, 1 IN 1 D), ORAL; 20 MG (20 MG, 1 IN 1 D), ORAL
     Route: 048
     Dates: start: 20070130

REACTIONS (10)
  - ABASIA [None]
  - ANOXIC ENCEPHALOPATHY [None]
  - APHASIA [None]
  - BRAIN INJURY [None]
  - COGNITIVE DISORDER [None]
  - FEEDING DISORDER [None]
  - OVERDOSE [None]
  - RESPIRATORY DISORDER [None]
  - SUICIDAL IDEATION [None]
  - SUICIDE ATTEMPT [None]
